FAERS Safety Report 6248754-6 (Version None)
Quarter: 2009Q2

REPORT INFORMATION
  Report Type: 
  Country: None (occurrence: None)
  Receive Date: 20090624
  Receipt Date: 20090610
  Transmission Date: 20091009
  Serious: Yes (Other)
  Sender: FDA-Public Use
  Company Number: 0906-133

PATIENT
  Age: 79 Year
  Sex: Female
  Weight: 72.1219 kg

DRUGS (6)
  1. ARCALYST [Suspect]
     Indication: FAMILIAL COLD AUTOINFLAMMATORY SYNDROME
     Dosage: 220 MG, QOW, SUBCUTANEOUS ; 220 MG, QWK, SUBCUTANEOUS
     Route: 058
     Dates: start: 20080201, end: 20090101
  2. ARCALYST [Suspect]
     Indication: FAMILIAL COLD AUTOINFLAMMATORY SYNDROME
     Dosage: 220 MG, QOW, SUBCUTANEOUS ; 220 MG, QWK, SUBCUTANEOUS
     Route: 058
     Dates: start: 20090301
  3. ANTARA (MICRONIZED) [Concomitant]
  4. SOTALOL HYDROCHLORIDE [Concomitant]
  5. TYLENOL (CAPLET) [Concomitant]
  6. ASPIRIN [Concomitant]

REACTIONS (2)
  - KNEE ARTHROPLASTY [None]
  - VITAMIN D DECREASED [None]
